FAERS Safety Report 13719574 (Version 2)
Quarter: 2017Q3

REPORT INFORMATION
  Report Type: Spontaneous
  Country: AU (occurrence: AU)
  Receive Date: 20170705
  Receipt Date: 20170818
  Transmission Date: 20171127
  Serious: Yes (Hospitalization)
  Sender: FDA-Public Use
  Company Number: AU-GLAXOSMITHKLINE-AU2017GSK103119

PATIENT
  Sex: Female

DRUGS (1)
  1. IMIGRAN MKII [Suspect]
     Active Substance: SUMATRIPTAN SUCCINATE
     Indication: MIGRAINE

REACTIONS (3)
  - Product use issue [Unknown]
  - Syringe issue [Unknown]
  - Drug dose omission [Unknown]
